FAERS Safety Report 16508140 (Version 1)
Quarter: 2019Q3

REPORT INFORMATION
  Report Type: Spontaneous
  Country: US (occurrence: US)
  Receive Date: 20190702
  Receipt Date: 20190702
  Transmission Date: 20191004
  Serious: No
  Sender: FDA-Public Use
  Company Number: US-ROCHE-2125584

PATIENT
  Age: 49 Year
  Sex: Female

DRUGS (1)
  1. XELODA [Suspect]
     Active Substance: CAPECITABINE
     Indication: TRIPLE NEGATIVE BREAST CANCER
     Dosage: EACH DAY FOR TWO WEEKS, THEN ONE WEEK OFF
     Route: 048
     Dates: start: 20171104

REACTIONS (11)
  - Erythema [Unknown]
  - Palmar-plantar erythrodysaesthesia syndrome [Unknown]
  - Gait disturbance [Unknown]
  - Skin exfoliation [Unknown]
  - Muscular weakness [Unknown]
  - Tooth fracture [Unknown]
  - Tooth abscess [Not Recovered/Not Resolved]
  - Diarrhoea [Unknown]
  - Blister [Unknown]
  - Skin disorder [Unknown]
  - Fatigue [Unknown]

NARRATIVE: CASE EVENT DATE: 201712
